FAERS Safety Report 6220007-1 (Version None)
Quarter: 2009Q2

REPORT INFORMATION
  Report Type: 
  Country: None (occurrence: None)
  Receive Date: 20090609
  Receipt Date: 20090605
  Transmission Date: 20091009
  Serious: Yes (Hospitalization)
  Sender: FDA-Public Use
  Company Number: JP-BRISTOL-MYERS SQUIBB COMPANY-14407589

PATIENT
  Age: 68 Year
  Sex: Male

DRUGS (3)
  1. BARACLUDE [Suspect]
     Indication: HEPATITIS B
     Route: 048
     Dates: start: 20081003, end: 20081103
  2. ONCOVIN [Suspect]
     Indication: NON-HODGKIN'S LYMPHOMA
     Route: 065
     Dates: end: 20080813
  3. METHYLCOBALAMIN [Concomitant]
     Route: 048
     Dates: start: 20080301, end: 20081113

REACTIONS (1)
  - HYPOAESTHESIA [None]
